FAERS Safety Report 16058989 (Version 1)
Quarter: 2019Q1

REPORT INFORMATION
  Report Type: Spontaneous
  Country: CN (occurrence: CN)
  Receive Date: 20190311
  Receipt Date: 20190311
  Transmission Date: 20190418
  Serious: Yes (Other)
  Sender: FDA-Public Use
  Company Number: CN-BAYER-2019-049000

PATIENT
  Age: 55 Year

DRUGS (1)
  1. NEXAVAR [Suspect]
     Active Substance: SORAFENIB
     Indication: HEPATOCELLULAR CARCINOMA
     Dosage: 400 MG, BID
     Route: 048
     Dates: start: 201801

REACTIONS (4)
  - Surgery [None]
  - Alpha 1 foetoprotein decreased [None]
  - Alpha 1 foetoprotein increased [None]
  - Hepatocellular carcinoma [None]

NARRATIVE: CASE EVENT DATE: 201804
